FAERS Safety Report 6017200-X (Version None)
Quarter: 2008Q4

REPORT INFORMATION
  Report Type: 
  Country: None (occurrence: None)
  Receive Date: 20081223
  Receipt Date: 20081210
  Transmission Date: 20090506
  Serious: Yes (Other)
  Sender: FDA-Public Use
  Company Number: CO-ROCHE-531385

PATIENT
  Sex: Female
  Weight: 58 kg

DRUGS (2)
  1. PEGASYS [Suspect]
     Indication: HEPATITIS C
     Dosage: WEEKLY
     Route: 042
     Dates: start: 20070625, end: 20071104
  2. RIBAVIRIN [Concomitant]
     Indication: HEPATITIS C
     Dosage: DAILY
     Route: 048
     Dates: start: 20070626, end: 20071108

REACTIONS (4)
  - BLINDNESS UNILATERAL [None]
  - CONJUNCTIVITIS [None]
  - FACE OEDEMA [None]
  - VITREOUS HAEMORRHAGE [None]
